FAERS Safety Report 9521618 (Version 1)
Quarter: 2013Q3

REPORT INFORMATION
  Report Type: Spontaneous
  Country: US (occurrence: None)
  Receive Date: 20130911
  Receipt Date: 20130911
  Transmission Date: 20140515
  Serious: No
  Sender: FDA-Public Use
  Company Number: AEUSA201300049

PATIENT
  Age: 50 Year
  Sex: Female
  Weight: 105.24 kg

DRUGS (3)
  1. GAMUNEX-C [Suspect]
     Indication: IMMUNODEFICIENCY COMMON VARIABLE
     Route: 042
     Dates: start: 201208
  2. SYMBICORT [Concomitant]
  3. EPIPEN [Concomitant]

REACTIONS (4)
  - Hypersensitivity [None]
  - Pyrexia [None]
  - Chest discomfort [None]
  - Urticaria [None]
